FAERS Safety Report 5415344-4 (Version None)
Quarter: 2007Q3

REPORT INFORMATION
  Report Type: 
  Country: None (occurrence: None)
  Receive Date: 20070813
  Receipt Date: 20070726
  Transmission Date: 20080115
  Serious: Yes (Other)
  Sender: FDA-Public Use
  Company Number: 2007RR-08908

PATIENT
  Sex: Female

DRUGS (1)
  1. ACICLO BASICS 200 MG (ACYCLOVIR) TABLET [Suspect]
     Indication: GENITAL HERPES
     Dosage: 400-4800, ORAL
     Route: 048

REACTIONS (6)
  - DEPRESSION [None]
  - FATIGUE [None]
  - FEELING ABNORMAL [None]
  - GASTROINTESTINAL DISORDER [None]
  - HEADACHE [None]
  - NAUSEA [None]
